FAERS Safety Report 5249888-5 (Version None)
Quarter: 2007Q1

REPORT INFORMATION
  Report Type: 
  Country: None (occurrence: None)
  Receive Date: 20070228
  Receipt Date: 20070213
  Transmission Date: 20070707
  Serious: Yes (Disabling, Other)
  Sender: FDA-Public Use
  Company Number: GBWYE650513FEB07

PATIENT
  Age: 70 Year
  Sex: Male
  Weight: 95 kg

DRUGS (4)
  1. ENBREL [Suspect]
     Indication: RHEUMATOID ARTHRITIS
     Dosage: 50MG FREQUENCY UNSPECIFIED
     Dates: start: 20050704, end: 20060724
  2. FOLIC ACID [Concomitant]
     Route: 048
     Dates: start: 19920101
  3. METHOTREXATE [Concomitant]
     Indication: RHEUMATOID ARTHRITIS
     Route: 048
     Dates: start: 19920101
  4. ACETAMINOPHEN W/ CODEINE [Concomitant]
     Dosage: UNKNOWN

REACTIONS (4)
  - CONDITION AGGRAVATED [None]
  - EYE SWELLING [None]
  - GLAUCOMA [None]
  - VISUAL ACUITY REDUCED [None]
